FAERS Safety Report 8370121-X (Version None)
Quarter: 2012Q2

REPORT INFORMATION
  Report Type: 
  Country: None (occurrence: None)
  Receive Date: 20120518
  Receipt Date: 20120514
  Transmission Date: 20120825
  Serious: Yes (Other)
  Sender: FDA-Public Use
  Company Number: CH-ABBOTT-12P-151-0903965-00

PATIENT
  Age: 78 Year
  Sex: Male
  Weight: 77 kg

DRUGS (11)
  1. HUMIRA [Suspect]
     Indication: RHEUMATOID ARTHRITIS
     Dates: start: 20110722, end: 20120116
  2. ACETAMINOPHEN [Concomitant]
     Indication: PRODUCT USED FOR UNKNOWN INDICATION
     Dosage: MAX 6 PER DAY, AS NEEDED
     Dates: start: 20101105
  3. ACETAMINOPHEN [Suspect]
     Indication: PRODUCT USED FOR UNKNOWN INDICATION
     Dosage: ON DEMAND, MAXIMUM 3GR PER DAY
     Dates: start: 20060101
  4. MICARDIS [Concomitant]
     Indication: PRODUCT USED FOR UNKNOWN INDICATION
  5. HUMIRA [Suspect]
     Dates: start: 20110720, end: 20120116
  6. MICARDIS HCT [Concomitant]
     Indication: PRODUCT USED FOR UNKNOWN INDICATION
     Dosage: 1-0-1
     Dates: start: 20100615
  7. HUMIRA [Suspect]
     Dates: start: 20120116, end: 20120116
  8. LERCANIDIPINE [Concomitant]
     Indication: PRODUCT USED FOR UNKNOWN INDICATION
     Dosage: 1-0-0
     Dates: start: 20100319
  9. OMEPRAZOLE [Concomitant]
     Indication: PRODUCT USED FOR UNKNOWN INDICATION
     Dosage: 2-0-2
     Dates: start: 20101002
  10. VITAMINE D3 [Concomitant]
     Indication: PRODUCT USED FOR UNKNOWN INDICATION
     Route: 030
     Dates: start: 20110907
  11. PRILOSEC [Suspect]
     Indication: PRODUCT USED FOR UNKNOWN INDICATION
     Dosage: ON DEMAND
     Dates: start: 20100101

REACTIONS (6)
  - RENAL FAILURE CHRONIC [None]
  - RENAL FAILURE [None]
  - PROTEINURIA [None]
  - BLOOD CREATININE INCREASED [None]
  - NEPHRITIS [None]
  - RENAL ATROPHY [None]
